FAERS Safety Report 19874272 (Version 3)
Quarter: 2022Q1

REPORT INFORMATION
  Report Type: Spontaneous
  Country: US (occurrence: None)
  Receive Date: 20210923
  Receipt Date: 20220209
  Transmission Date: 20220424
  Serious: Yes (Hospitalization)
  Sender: FDA-Public Use
  Company Number: 2021A733797

PATIENT
  Age: 48 Year
  Sex: Male

DRUGS (4)
  1. DAPAGLIFLOZIN [Suspect]
     Active Substance: DAPAGLIFLOZIN
     Indication: Type 2 diabetes mellitus
     Route: 048
  2. PREPRANDIALASPART INSULIN [Concomitant]
     Indication: Type 2 diabetes mellitus
     Route: 065
  3. METFORMIN [Concomitant]
     Active Substance: METFORMIN HYDROCHLORIDE
     Indication: Type 2 diabetes mellitus
     Dosage: GLIPIZIDE (500 MG + 5 MG) DAILY
     Route: 065
  4. GLIPIZIDE [Concomitant]
     Active Substance: GLIPIZIDE
     Indication: Type 2 diabetes mellitus
     Dosage: GLIPIZIDE (500 MG + 5 MG) DAILY
     Route: 065

REACTIONS (1)
  - Euglycaemic diabetic ketoacidosis [Recovered/Resolved]
